FAERS Safety Report 5833258-2 (Version None)
Quarter: 2008Q3

REPORT INFORMATION
  Report Type: 
  Country: None (occurrence: None)
  Receive Date: 20080805
  Receipt Date: 20080725
  Transmission Date: 20090109
  Serious: Yes (Hospitalization)
  Sender: FDA-Public Use
  Company Number: US-JNJFOC-20080706332

PATIENT
  Sex: Female
  Weight: 95.26 kg

DRUGS (6)
  1. FENTANYL TRANSDERMAL SYSTEM [Suspect]
     Indication: PAIN IN EXTREMITY
     Route: 062
  2. FENTANYL TRANSDERMAL SYSTEM [Suspect]
     Indication: OSTEOARTHRITIS
     Route: 062
  3. FLONASE [Concomitant]
     Indication: ASTHMA
     Route: 045
  4. ALBUTEROL [Concomitant]
     Indication: ASTHMA
     Route: 055
  5. PERCOCET [Concomitant]
     Indication: PAIN
     Dosage: 10 / 325 MG
     Route: 048
  6. TOPROL-XL [Concomitant]
     Indication: HYPERTENSION
     Route: 048

REACTIONS (2)
  - FALL [None]
  - WRONG TECHNIQUE IN DRUG USAGE PROCESS [None]
